FAERS Safety Report 6075662-6 (Version None)
Quarter: 2009Q1

REPORT INFORMATION
  Report Type: 
  Country: None (occurrence: None)
  Receive Date: 20090209
  Receipt Date: 20090127
  Transmission Date: 20090719
  Serious: Yes (Hospitalization)
  Sender: FDA-Public Use
  Company Number: 2009SP001811

PATIENT
  Age: 51 Year
  Sex: Female

DRUGS (3)
  1. INTEGRILIN (EPITFIBATIDE) (EPITIFIBATIDE) [Suspect]
     Indication: MYOCARDIAL INFARCTION
     Dosage: ONCE; INBO
     Route: 040
     Dates: start: 20090124, end: 20090124
  2. INTEGRILIN (EPITFIBATIDE) (EPITIFIBATIDE) [Suspect]
     Indication: MYOCARDIAL INFARCTION
     Dosage: ONCE; INBO
     Route: 040
     Dates: start: 20090124, end: 20090127
  3. . [Concomitant]

REACTIONS (1)
  - MYOCARDIAL INFARCTION [None]
